FAERS Safety Report 23855694 (Version 2)
Quarter: 2024Q2

REPORT INFORMATION
  Report Type: Spontaneous
  Country: US (occurrence: US)
  Receive Date: 20240514
  Receipt Date: 20240524
  Transmission Date: 20240716
  Serious: No
  Sender: FDA-Public Use
  Company Number: US-009507513-2405USA000794

PATIENT
  Age: 69 Year
  Sex: Female

DRUGS (4)
  1. KEYTRUDA [Suspect]
     Active Substance: PEMBROLIZUMAB
     Indication: Bladder cancer stage IV
  2. PADCEV [Suspect]
     Active Substance: ENFORTUMAB VEDOTIN-EJFV
     Indication: Bladder cancer stage IV
     Dosage: UNK, CYCLICAL (ONCE A WEEK FOR THREE WEEKS AND THEN ONE WEEK OFF)
     Route: 042
     Dates: start: 20240305, end: 202403
  3. PADCEV [Suspect]
     Active Substance: ENFORTUMAB VEDOTIN-EJFV
     Dosage: UNK, CYCLICAL (ONCE A WEEK FOR THREE WEEKS AND THEN ONE WEEK OFF)
     Route: 042
     Dates: start: 20240305
  4. LINZESS [Concomitant]
     Active Substance: LINACLOTIDE
     Indication: Constipation

REACTIONS (8)
  - Blister [Recovering/Resolving]
  - Skin ulcer [Recovering/Resolving]
  - Sleep disorder [Recovering/Resolving]
  - Urinary tract infection [Recovering/Resolving]
  - Vision blurred [Recovering/Resolving]
  - Pruritus [Recovering/Resolving]
  - Rash [Recovering/Resolving]
  - Oral mucosal eruption [Recovering/Resolving]

NARRATIVE: CASE EVENT DATE: 20240314
